FAERS Safety Report 15170864 (Version 5)
Quarter: 2018Q3

REPORT INFORMATION
  Report Type: Spontaneous
  Country: JP (occurrence: JP)
  Receive Date: 20180720
  Receipt Date: 20180929
  Transmission Date: 20181010
  Serious: Yes (Death, Hospitalization, Other)
  Sender: FDA-Public Use
  Company Number: JP-BRISTOL-MYERS SQUIBB COMPANY-BMS-2018-068298

PATIENT
  Age: 71 Year
  Sex: Male

DRUGS (16)
  1. OXYCONTIN [Concomitant]
     Active Substance: OXYCODONE HYDROCHLORIDE
     Indication: CANCER PAIN
     Dosage: 60 MG, BID
     Route: 048
     Dates: start: 20180622
  2. LAC?B GRANULAR POWDER N [Concomitant]
     Indication: CONSTIPATION
     Dosage: 3 G, TID
     Route: 048
     Dates: start: 20171225
  3. DENOTAS [Concomitant]
     Active Substance: CALCIUM CARBONATE\CHOLECALCIFEROL\MAGNESIUM CARBONATE
     Indication: HYPOCALCAEMIA
     Dosage: 1 TAB, QD
     Route: 048
     Dates: start: 20180608
  4. NALOXONE HCL [Concomitant]
     Active Substance: NALOXONE HYDROCHLORIDE
     Indication: CANCER PAIN
     Dosage: 0.2 MG, QD
     Route: 042
     Dates: start: 20180712
  5. SENNOSIDE A+B CALCIUM [Concomitant]
     Active Substance: SENNOSIDES A AND B
     Indication: CONSTIPATION
     Dosage: 24 MG, PRN
     Route: 048
     Dates: start: 20180501
  6. PREDNISOLONE. [Concomitant]
     Active Substance: PREDNISOLONE
     Indication: MALAISE
     Dosage: 10 MG, QD
     Route: 048
     Dates: start: 20180504
  7. OPDIVO [Suspect]
     Active Substance: NIVOLUMAB
     Indication: NON-SMALL CELL LUNG CANCER
     Dosage: 3 MG/KG, UNK
     Route: 041
     Dates: start: 20180427
  8. VOLTAREN [Concomitant]
     Active Substance: DICLOFENAC SODIUM
     Indication: ARTHRITIS
     Dosage: 15 MG, QD
     Route: 062
     Dates: start: 20171110
  9. OXINORM                            /00045603/ [Concomitant]
     Active Substance: OXYCODONE HYDROCHLORIDE
     Indication: CANCER PAIN
     Dosage: 10 MG, PRN
     Route: 048
     Dates: start: 20180711
  10. CALONAL [Concomitant]
     Active Substance: ACETAMINOPHEN
     Indication: CANCER PAIN
     Dosage: 1000 MG, BID
     Route: 048
     Dates: start: 20180622
  11. RANMARK [Concomitant]
     Active Substance: DENOSUMAB
     Indication: NON-SMALL CELL LUNG CANCER
     Dosage: 120 MG, Q4WK
     Route: 058
     Dates: start: 20180608
  12. PARIET [Concomitant]
     Active Substance: RABEPRAZOLE SODIUM
     Indication: GASTRITIS
     Dosage: 10 MG, QD
     Route: 048
  13. AMLODIN [Concomitant]
     Active Substance: AMLODIPINE BESYLATE
     Indication: HYPERTENSION
     Dosage: 10 MG, QD
     Route: 048
     Dates: start: 20171108
  14. MAGMITT [Concomitant]
     Active Substance: MAGNESIUM OXIDE
     Indication: CONSTIPATION
     Dosage: 990 MG, TID
     Route: 048
  15. VOLTAREN [Concomitant]
     Active Substance: DICLOFENAC SODIUM
     Indication: CANCER PAIN
     Dosage: 25 MG, PRN
     Route: 050
     Dates: start: 20171106
  16. LOXOPROFEN [Concomitant]
     Active Substance: LOXOPROFEN
     Indication: CANCER PAIN
     Dosage: 180 MG, TID
     Route: 048

REACTIONS (7)
  - Neuropathy peripheral [Unknown]
  - Renal impairment [Unknown]
  - Liver function test increased [Unknown]
  - Interstitial lung disease [Fatal]
  - Malignant neoplasm progression [Fatal]
  - Gallbladder perforation [Recovering/Resolving]
  - Cancer pain [Unknown]

NARRATIVE: CASE EVENT DATE: 2018
